FAERS Safety Report 4377148-3 (Version None)
Quarter: 2004Q2

REPORT INFORMATION
  Report Type: 
  Country: None (occurrence: None)
  Receive Date: 20040614
  Receipt Date: 20040614
  Transmission Date: 20050107
  Serious: Yes (Hospitalization)
  Sender: FDA-Public Use
  Company Number: None

PATIENT
  Age: 38 Year
  Sex: Female
  Weight: 61.6 kg

DRUGS (8)
  1. TAXOL [Suspect]
     Indication: BREAST CANCER METASTATIC
     Dosage: 134 MG WEEKLY IV
     Route: 042
     Dates: start: 20040520, end: 20040601
  2. GLUTAMINE [Suspect]
     Indication: NEUROPATHY
     Dosage: 10 GRAMS TID ORAL
     Route: 048
     Dates: start: 20040521, end: 20040601
  3. GLUTAMINE [Suspect]
     Indication: PROPHYLAXIS
     Dosage: 10 GRAMS TID ORAL
     Route: 048
     Dates: start: 20040521, end: 20040601
  4. VIOXX [Concomitant]
  5. PERCOCET [Concomitant]
  6. OXYCODONE [Concomitant]
  7. DURAGESIC [Concomitant]
  8. ZOMETA [Concomitant]

REACTIONS (3)
  - NAUSEA [None]
  - OESOPHAGITIS HAEMORRHAGIC [None]
  - VOMITING [None]
